FAERS Safety Report 21294796 (Version 1)
Quarter: 2022Q3

REPORT INFORMATION
  Report Type: Spontaneous
  Country: US (occurrence: US)
  Receive Date: 20220905
  Receipt Date: 20220905
  Transmission Date: 20221027
  Serious: No
  Sender: FDA-Public Use
  Company Number: US-BRISTOL-MYERS SQUIBB COMPANY-2022-100105

PATIENT
  Age: 48 Year
  Sex: Female

DRUGS (1)
  1. ORENCIA [Suspect]
     Active Substance: ABATACEPT
     Indication: Psoriatic arthropathy
     Dosage: INJECT 1 PEN UNDER THE SKIN AT WEEK 0, THEN AT WEEK 4 THEN INJECT 1 PEN EVERY 8 WEEKS THEREAFTER
     Route: 058
     Dates: start: 202203

REACTIONS (2)
  - Drug ineffective [Unknown]
  - Off label use [Unknown]
